FAERS Safety Report 24752598 (Version 1)
Quarter: 2024Q4

REPORT INFORMATION
  Report Type: Report from Study
  Country: CA (occurrence: CA)
  Receive Date: 20241219
  Receipt Date: 20241219
  Transmission Date: 20250115
  Serious: Yes (Other)
  Sender: SAMSUNG BIOEPIS
  Company Number: CA-SAMSUNG BIOEPIS-SB-2024-37981

PATIENT
  Age: 72 Year
  Sex: Male
  Weight: 119 kg

DRUGS (1)
  1. RENFLEXIS [Suspect]
     Active Substance: INFLIXIMAB-ABDA
     Indication: Colitis ulcerative
     Route: 042
     Dates: start: 20230628

REACTIONS (3)
  - Colitis ulcerative [Unknown]
  - Faecal calprotectin increased [Unknown]
  - Drug ineffective [Unknown]
